FAERS Safety Report 10247600 (Version 1)
Quarter: 2014Q2

REPORT INFORMATION
  Report Type: Report from Study
  Country: AR (occurrence: AR)
  Receive Date: 20140619
  Receipt Date: 20140619
  Transmission Date: 20141212
  Serious: Yes (Death, Hospitalization, Other)
  Sender: FDA-Public Use
  Company Number: PHHY2014AR075640

PATIENT
  Age: 83 Year
  Sex: Male

DRUGS (5)
  1. DIOVAN [Suspect]
     Indication: HYPERTENSION
     Dosage: 160 MG, PER DAY
     Route: 048
  2. DIOVAN [Suspect]
     Dosage: 80 MG, PER DAY
     Route: 048
  3. IRON [Concomitant]
     Indication: ANAEMIA
     Dosage: 1 UKN, A MONTH
     Route: 042
  4. IRON [Concomitant]
     Indication: RENAL DISORDER
  5. T4 [Concomitant]
     Indication: THYROID DISORDER
     Dosage: UNK UKN, UNK

REACTIONS (10)
  - Death [Fatal]
  - Syncope [Unknown]
  - Muscular weakness [Unknown]
  - Pulmonary oedema [Unknown]
  - Weight decreased [Unknown]
  - Gait disturbance [Unknown]
  - Eating disorder [Unknown]
  - Malaise [Unknown]
  - Asthenia [Unknown]
  - Blood pressure decreased [Unknown]
